FAERS Safety Report 11969992 (Version 1)
Quarter: 2016Q1

REPORT INFORMATION
  Report Type: Spontaneous
  Country: JP (occurrence: JP)
  Receive Date: 20160128
  Receipt Date: 20160128
  Transmission Date: 20160526
  Serious: Yes (Hospitalization)
  Sender: FDA-Public Use
  Company Number: PHBS2000JP06705

PATIENT
  Age: 51 Year
  Sex: Female
  Weight: 48 kg

DRUGS (8)
  1. MEDICON [Suspect]
     Active Substance: DEXTROMETHORPHAN HYDROBROMIDE
     Route: 048
     Dates: start: 20000221, end: 20000225
  2. VOLTAREN [Suspect]
     Active Substance: DICLOFENAC SODIUM
     Indication: PYREXIA
     Route: 054
     Dates: start: 20000226, end: 20000226
  3. PELEX [Suspect]
     Active Substance: CETYLPYRIDINIUM CHLORIDE\CHLORPHENIRAMINE MALEATE\GLYCYRRHIZINATE DIPOTASSIUM
     Route: 065
     Dates: start: 20000221
  4. ISALON [Suspect]
     Active Substance: UNSPECIFIED INGREDIENT
     Route: 048
     Dates: start: 20000221, end: 20000225
  5. VOLTAREN [Suspect]
     Active Substance: DICLOFENAC SODIUM
     Route: 054
     Dates: start: 20000221, end: 20000221
  6. VOLTAREN [Suspect]
     Active Substance: DICLOFENAC SODIUM
     Dates: start: 20000221, end: 20000221
  7. ASPIRIN. [Suspect]
     Active Substance: ASPIRIN
     Route: 054
     Dates: start: 20000223, end: 20000225
  8. CEFZON [Suspect]
     Active Substance: CEFDINIR
     Route: 048
     Dates: start: 20000221, end: 20000225

REACTIONS (7)
  - Stridor [Unknown]
  - Wheezing [Unknown]
  - Rash [Recovered/Resolved]
  - Asthma [Recovered/Resolved]
  - Orthopnoea [Unknown]
  - Interstitial lung disease [Recovered/Resolved]
  - Rales [Unknown]

NARRATIVE: CASE EVENT DATE: 20000225
